FAERS Safety Report 8196322-1 (Version None)
Quarter: 2012Q1

REPORT INFORMATION
  Report Type: 
  Country: None (occurrence: None)
  Receive Date: 20120309
  Receipt Date: 20120306
  Transmission Date: 20120608
  Serious: No
  Sender: FDA-Public Use
  Company Number: US-PFIZER INC-2010064943

PATIENT
  Sex: Male
  Weight: 102 kg

DRUGS (4)
  1. EFFEXOR XR [Suspect]
     Indication: DEPRESSION
     Dosage: 75 MG, 2X/DAY
     Route: 048
     Dates: start: 20100601
  2. EFFEXOR [Suspect]
     Indication: DEPRESSION
     Dosage: UNK
  3. VENLAFAXINE HCL [Suspect]
     Indication: DEPRESSION
     Dosage: UNK
  4. PRISTIQ [Suspect]
     Indication: DEPRESSION
     Dosage: UNK, 2X/DAY
     Route: 048
     Dates: start: 20100501, end: 20100101

REACTIONS (4)
  - DRUG INEFFECTIVE [None]
  - DEPRESSION [None]
  - DYSPNOEA [None]
  - ASTHENIA [None]
